FAERS Safety Report 17415537 (Version 1)
Quarter: 2020Q1

REPORT INFORMATION
  Report Type: Spontaneous
  Country: IT (occurrence: IT)
  Receive Date: 20200213
  Receipt Date: 20200213
  Transmission Date: 20200409
  Serious: Yes (Hospitalization, Other)
  Sender: FDA-Public Use
  Company Number: IT-INDIVIOR US-INDV-123539-2020

PATIENT
  Age: 34 Year
  Sex: Female

DRUGS (1)
  1. SUBOXONE [Suspect]
     Active Substance: BUPRENORPHINE HYDROCHLORIDE\NALOXONE HYDROCHLORIDE
     Indication: PRODUCT USED FOR UNKNOWN INDICATION
     Dosage: 2 MILLIGRAM, QD
     Route: 048
     Dates: start: 20200128, end: 20200128

REACTIONS (7)
  - Vomiting [Recovered/Resolved]
  - Malaise [Recovered/Resolved]
  - Vertigo [Recovered/Resolved]
  - Balance disorder [Recovered/Resolved]
  - Nausea [Recovered/Resolved]
  - Toxicity to various agents [Recovered/Resolved]
  - Product use issue [Recovered/Resolved]

NARRATIVE: CASE EVENT DATE: 20200128
